FAERS Safety Report 5519101-X (Version None)
Quarter: 2007Q4

REPORT INFORMATION
  Report Type: 
  Country: None (occurrence: None)
  Receive Date: 20071116
  Receipt Date: 20071108
  Transmission Date: 20080405
  Serious: Yes (Hospitalization)
  Sender: FDA-Public Use
  Company Number: US-WYE-H01147207

PATIENT
  Age: 16 Year
  Sex: Female

DRUGS (3)
  1. EFFEXOR XR [Suspect]
     Indication: BIPOLAR I DISORDER
     Route: 048
     Dates: start: 20071001, end: 20070101
  2. EFFEXOR XR [Suspect]
     Dosage: 300 MG, FREQUENCY NOT SPECIFIED
     Route: 048
     Dates: start: 20070101, end: 20070101
  3. EFFEXOR XR [Suspect]
     Dosage: ^TAPERED TO DISCONTINUATION^
     Route: 048
     Dates: start: 20070101, end: 20071101

REACTIONS (5)
  - CONDITION AGGRAVATED [None]
  - DEPRESSION [None]
  - SOMNOLENCE [None]
  - SUICIDE ATTEMPT [None]
  - TREMOR [None]
